FAERS Safety Report 4262941-8 (Version None)
Quarter: 2004Q1

REPORT INFORMATION
  Report Type: 
  Country: None (occurrence: None)
  Receive Date: 20040102
  Receipt Date: 20040102
  Transmission Date: 20041129
  Serious: No
  Sender: FDA-Public Use
  Company Number: None

PATIENT
  Sex: Female
  Weight: 92.9874 kg

DRUGS (15)
  1. DAPTOMYCIN 500 MG CUBIST [Suspect]
     Indication: ARTHRITIS BACTERIAL
     Dosage: 400 MG EVERY 4 HO INTRAVENOUS
     Route: 042
     Dates: start: 20031120, end: 20031129
  2. CLINDAMYCIN [Concomitant]
  3. PROTONIX [Concomitant]
  4. METOPROLOL [Concomitant]
  5. VICODIN [Concomitant]
  6. MILK OF MAGENSIA [Concomitant]
  7. SUPRAX [Concomitant]
  8. K-DUR 10 [Concomitant]
  9. LASIX [Concomitant]
  10. PREDNISONE [Concomitant]
  11. NORVASC [Concomitant]
  12. HYTRIN [Concomitant]
  13. DANAZOL [Concomitant]
  14. LISINOPRIL [Concomitant]
  15. MULTI-VITAMIN [Concomitant]

REACTIONS (1)
  - BLOOD CREATINE PHOSPHOKINASE INCREASED [None]
